FAERS Safety Report 4451634-X (Version None)
Quarter: 2004Q3

REPORT INFORMATION
  Report Type: 
  Country: None (occurrence: None)
  Receive Date: 20040915
  Receipt Date: 20040831
  Transmission Date: 20050211
  Serious: Yes (Hospitalization)
  Sender: FDA-Public Use
  Company Number: 04P-062-0272242-00

PATIENT
  Age: 64 Year
  Sex: Male

DRUGS (5)
  1. HUMIRA [Suspect]
     Indication: RHEUMATOID ARTHRITIS
     Dates: start: 20031101, end: 20040813
  2. PREDNISOLONE ACETATE [Concomitant]
  3. VOLTAREN [Concomitant]
  4. LEKOVIT CA [Concomitant]
  5. RIFAMPICINE (RIFAMPICIN) [Concomitant]

REACTIONS (11)
  - ACUTE MYOCARDIAL INFARCTION [None]
  - ALCOHOL USE [None]
  - ARTHRALGIA [None]
  - ASPIRATION [None]
  - BRONCHIAL NEOPLASM [None]
  - FALL [None]
  - HEAD INJURY [None]
  - HYPERTENSION [None]
  - NICOTINE DEPENDENCE [None]
  - SYNCOPE [None]
  - VENTRICULAR FIBRILLATION [None]
